FAERS Safety Report 7244216-8 (Version None)
Quarter: 2011Q1

REPORT INFORMATION
  Report Type: 
  Country: None (occurrence: None)
  Receive Date: 20110119
  Receipt Date: 20110119
  Transmission Date: 20110831
  Serious: Yes (Other)
  Sender: FDA-Public Use
  Company Number: None

PATIENT
  Sex: Female
  Weight: 90.2658 kg

DRUGS (3)
  1. SUBOXONE [Suspect]
     Indication: PAIN
     Dosage: 1 FILM 1 X DAY SL
     Route: 060
     Dates: start: 20110104, end: 20110107
  2. ONDESETRON [Concomitant]
  3. NIMOPIDINE [Concomitant]

REACTIONS (4)
  - PRURITUS [None]
  - PAIN IN EXTREMITY [None]
  - HYPOAESTHESIA [None]
  - ARTHRALGIA [None]
